FAERS Safety Report 14890496 (Version 1)
Quarter: 2018Q2

REPORT INFORMATION
  Report Type: Spontaneous
  Country: US (occurrence: US)
  Receive Date: 20180426
  Receipt Date: 20180426
  Transmission Date: 20180711
  Serious: No
  Sender: FDA-Public Use
  Company Number: None

PATIENT
  Age: 80 Year
  Sex: Female
  Weight: 694.35 kg

DRUGS (8)
  1. CO-Q 10 [Concomitant]
     Active Substance: UBIDECARENONE
  2. FISH OIL [Concomitant]
     Active Substance: FISH OIL
  3. XANAX [Concomitant]
     Active Substance: ALPRAZOLAM
  4. HEXALEN [Suspect]
     Active Substance: ALTRETAMINE
     Indication: OVARIAN CANCER
     Route: 048
     Dates: start: 20180301
  5. COLACE [Concomitant]
     Active Substance: DOCUSATE SODIUM
  6. SYMBICORT [Concomitant]
     Active Substance: BUDESONIDE\FORMOTEROL FUMARATE DIHYDRATE
  7. ZOCOR [Concomitant]
     Active Substance: SIMVASTATIN
  8. DILTIAZEM. [Concomitant]
     Active Substance: DILTIAZEM

REACTIONS (1)
  - Nausea [None]

NARRATIVE: CASE EVENT DATE: 20180425
